FAERS Safety Report 23099580 (Version 2)
Quarter: 2023Q4

REPORT INFORMATION
  Report Type: Spontaneous
  Country: US (occurrence: US)
  Receive Date: 20231024
  Receipt Date: 20231228
  Transmission Date: 20240109
  Serious: No
  Sender: FDA-Public Use
  Company Number: US-SA-SAC20231021000398

PATIENT
  Sex: Female

DRUGS (2)
  1. DUPIXENT [Suspect]
     Active Substance: DUPILUMAB
     Indication: Dermatitis atopic
     Dosage: 300 MG, QOW
     Route: 058
     Dates: start: 202309
  2. LUMIFY [Concomitant]
     Active Substance: BRIMONIDINE TARTRATE
     Dosage: UNK

REACTIONS (13)
  - Vitreous floaters [Unknown]
  - Lacrimation increased [Unknown]
  - Vulvovaginal rash [Unknown]
  - Eczema [Unknown]
  - Sleep disorder due to a general medical condition [Unknown]
  - Impaired quality of life [Unknown]
  - Mood altered [Unknown]
  - Emotional disorder [Unknown]
  - Ocular hyperaemia [Unknown]
  - Pruritus [Unknown]
  - Eye pruritus [Unknown]
  - Oral herpes [Recovering/Resolving]
  - Hypersensitivity [Unknown]

NARRATIVE: CASE EVENT DATE: 20230101
